FAERS Safety Report 9993601 (Version 3)
Quarter: 2014Q2

REPORT INFORMATION
  Report Type: Report from Study
  Country: BR (occurrence: BR)
  Receive Date: 20140310
  Receipt Date: 20140515
  Transmission Date: 20141212
  Serious: Yes (Other)
  Sender: FDA-Public Use
  Company Number: PHHY2014BR028547

PATIENT
  Sex: Female
  Weight: 50 kg

DRUGS (2)
  1. DIOVAN AMLO FIX [Suspect]
     Indication: HYPERTENSION
     Dosage: 1 DF (320 MG VAL/ 5 MG AMLO), DAILY
     Route: 048
  2. AAS [Concomitant]
     Indication: ANTICOAGULANT THERAPY
     Dosage: UNK UKN, UNK

REACTIONS (4)
  - Dementia Alzheimer^s type [Recovering/Resolving]
  - Carotid artery occlusion [Recovering/Resolving]
  - Memory impairment [Not Recovered/Not Resolved]
  - Malaise [Unknown]
